FAERS Safety Report 11930175 (Version 1)
Quarter: 2016Q1

REPORT INFORMATION
  Report Type: Spontaneous
  Country: US (occurrence: None)
  Receive Date: 20160119
  Receipt Date: 20160119
  Transmission Date: 20160526
  Serious: Yes (Death)
  Sender: FDA-Public Use
  Company Number: None

PATIENT
  Age: 57 Year
  Sex: Female

DRUGS (3)
  1. MYRBETRIQ [Concomitant]
     Active Substance: MIRABEGRON
  2. COUMADIN [Concomitant]
     Active Substance: WARFARIN SODIUM
  3. HUMIRA [Suspect]
     Active Substance: ADALIMUMAB
     Indication: CROHN^S DISEASE
     Dosage: Q 14 DAYS
     Route: 058
     Dates: start: 20150915

REACTIONS (2)
  - Weight increased [None]
  - International normalised ratio increased [None]

NARRATIVE: CASE EVENT DATE: 20160115
